FAERS Safety Report 18648765 (Version 1)
Quarter: 2020Q4

REPORT INFORMATION
  Report Type: Spontaneous
  Country: GB (occurrence: GB)
  Receive Date: 20201222
  Receipt Date: 20201222
  Transmission Date: 20210114
  Serious: Yes (Hospitalization)
  Sender: FDA-Public Use
  Company Number: GB-PFIZER INC-2020501405

PATIENT
  Age: 38 Year
  Sex: Male
  Weight: 62 kg

DRUGS (1)
  1. FILGRASTIM [Suspect]
     Active Substance: FILGRASTIM
     Indication: STEM CELL DONOR
     Dosage: 780 UG, 1X/DAY
     Route: 058
     Dates: start: 20201126, end: 20201201

REACTIONS (3)
  - Off label use [Unknown]
  - Splenic rupture [Recovering/Resolving]
  - Abdominal pain [Unknown]

NARRATIVE: CASE EVENT DATE: 20201126
